FAERS Safety Report 21711906 (Version 2)
Quarter: 2022Q4

REPORT INFORMATION
  Report Type: Other
  Country: DK (occurrence: DK)
  Receive Date: 20221212
  Receipt Date: 20221213
  Transmission Date: 20230113
  Serious: No
  Sender: FDA-Public Use
  Company Number: DK-ROCHE-3226433

PATIENT
  Age: 3 Decade
  Sex: Female

DRUGS (1)
  1. RITUXIMAB [Suspect]
     Active Substance: RITUXIMAB
     Indication: Relapsing-remitting multiple sclerosis
     Dosage: 5 DOSES
     Route: 065

REACTIONS (2)
  - Vulvovaginal inflammation [Recovered/Resolved]
  - Off label use [Unknown]
